FAERS Safety Report 12519935 (Version 5)
Quarter: 2016Q4

REPORT INFORMATION
  Report Type: Spontaneous
  Country: US (occurrence: US)
  Receive Date: 20160630
  Receipt Date: 20161013
  Transmission Date: 20170207
  Serious: Yes (Hospitalization, Disabling, Other)
  Sender: FDA-Public Use
  Company Number: US-PFIZER INC-2016318721

PATIENT
  Age: 68 Year
  Sex: Female
  Weight: 99 kg

DRUGS (5)
  1. LYRICA [Suspect]
     Active Substance: PREGABALIN
     Indication: FIBROMYALGIA
     Dosage: 75 MG, 2X/DAY
  2. SAVELLA [Interacting]
     Active Substance: MILNACIPRAN HYDROCHLORIDE
     Indication: BACK PAIN
     Dosage: 100 MG, 2X/DAY
     Route: 048
  3. LYRICA [Interacting]
     Active Substance: PREGABALIN
     Dosage: 150 MG, 2X/DAY
  4. SAVELLA [Interacting]
     Active Substance: MILNACIPRAN HYDROCHLORIDE
     Indication: ANKYLOSING SPONDYLITIS
     Dosage: UNK, 3X/DAY
     Route: 048
  5. SAVELLA [Interacting]
     Active Substance: MILNACIPRAN HYDROCHLORIDE
     Indication: ASTHENIA

REACTIONS (11)
  - Diabetes mellitus [Unknown]
  - Drug ineffective [Unknown]
  - Nerve injury [Recovered/Resolved]
  - Paraesthesia [Unknown]
  - Fall [Recovered/Resolved]
  - Condition aggravated [Recovered/Resolved]
  - Pain in extremity [Unknown]
  - Swelling [Unknown]
  - Burning sensation [Not Recovered/Not Resolved]
  - Weight decreased [Unknown]
  - Drug interaction [Recovered/Resolved]

NARRATIVE: CASE EVENT DATE: 201604
